FAERS Safety Report 15821637 (Version 3)
Quarter: 2020Q1

REPORT INFORMATION
  Report Type: Spontaneous
  Country: US (occurrence: US)
  Receive Date: 20190114
  Receipt Date: 20200114
  Transmission Date: 20200409
  Serious: No
  Sender: FDA-Public Use
  Company Number: US-PFIZER INC-2019011765

PATIENT
  Sex: Female
  Weight: 44 kg

DRUGS (2)
  1. GABAPENTIN. [Suspect]
     Active Substance: GABAPENTIN
     Indication: NEURALGIA
     Dosage: UNK
     Dates: start: 20200105
  2. GABAPENTIN. [Suspect]
     Active Substance: GABAPENTIN
     Indication: MULTIPLE SCLEROSIS
     Dosage: 700 MG, 3X/DAY (100 MG IN AM, 100 MG MID DAY, 500 MG QHS)
     Route: 048
     Dates: start: 20181124

REACTIONS (5)
  - Diarrhoea [Recovered/Resolved]
  - Product use in unapproved indication [Unknown]
  - Malaise [Unknown]
  - Abdominal pain upper [Recovering/Resolving]
  - Off label use [Unknown]
